FAERS Safety Report 4881099-5 (Version None)
Quarter: 2005Q4

REPORT INFORMATION
  Report Type: 
  Country: None (occurrence: None)
  Receive Date: 20051223
  Receipt Date: 20050922
  Transmission Date: 20060501
  Serious: No
  Sender: FDA-Public Use
  Company Number: 05P-163-0311690-00

PATIENT
  Age: 69 Year
  Sex: Male
  Weight: 70.7611 kg

DRUGS (6)
  1. HUMIRA [Suspect]
     Indication: RHEUMATOID ARTHRITIS
     Dosage: 40 MG, 1 IN 2 WK, SUBCUTANEOUS
     Route: 058
     Dates: start: 20050628
  2. METHOTREXATE [Concomitant]
  3. FOLIC ACID [Concomitant]
  4. PREDNISONE [Concomitant]
  5. ALENDRONATE SODIUM [Concomitant]
  6. PROPACET 100 [Concomitant]

REACTIONS (2)
  - ARTHRALGIA [None]
  - ASTHENIA [None]
